FAERS Safety Report 22074070 (Version 4)
Quarter: 2023Q2

REPORT INFORMATION
  Report Type: Report from Study
  Country: US (occurrence: US)
  Receive Date: 20230308
  Receipt Date: 20230508
  Transmission Date: 20230721
  Serious: Yes (Hospitalization, Other)
  Sender: FDA-Public Use
  Company Number: US-ABBVIE-4310577

PATIENT
  Age: 70 Year
  Sex: Female

DRUGS (1)
  1. SKYRIZI [Suspect]
     Active Substance: RISANKIZUMAB-RZAA
     Indication: Psoriasis
     Route: 058
     Dates: start: 20220818

REACTIONS (5)
  - Joint dislocation [Recovered/Resolved]
  - Hospitalisation [Unknown]
  - Pneumonia [Recovered/Resolved]
  - Road traffic accident [Unknown]
  - Arthropathy [Recovered/Resolved]

NARRATIVE: CASE EVENT DATE: 20230117
